FAERS Safety Report 25746397 (Version 1)
Quarter: 2025Q3

REPORT INFORMATION
  Report Type: Spontaneous
  Country: IN (occurrence: IN)
  Receive Date: 20250901
  Receipt Date: 20250901
  Transmission Date: 20251020
  Serious: Yes (Other)
  Sender: HETERO
  Company Number: IN-HETERO-HET2025IN05069

PATIENT
  Age: 12 Year
  Sex: Male

DRUGS (1)
  1. PREGABALIN [Suspect]
     Active Substance: PREGABALIN
     Indication: Sleep apnoea syndrome
     Route: 065

REACTIONS (11)
  - Drug dependence [Unknown]
  - Intentional overdose [Unknown]
  - Off label use [Unknown]
  - Irritability [Recovering/Resolving]
  - Restlessness [Recovering/Resolving]
  - Feeling jittery [Recovering/Resolving]
  - Insomnia [Recovering/Resolving]
  - Pain in extremity [Recovering/Resolving]
  - Vomiting [Recovering/Resolving]
  - Paraesthesia [Recovering/Resolving]
  - Headache [Recovering/Resolving]
